FAERS Safety Report 11670254 (Version 1)
Quarter: 2015Q4

REPORT INFORMATION
  Report Type: Spontaneous
  Country: US (occurrence: US)
  Receive Date: 20151027
  Receipt Date: 20151027
  Transmission Date: 20160304
  Serious: No
  Sender: FDA-Public Use
  Company Number: US-ELI_LILLY_AND_COMPANY-US201005000076

PATIENT
  Age: 86 Year
  Sex: Male

DRUGS (1)
  1. FORTEO [Suspect]
     Active Substance: TERIPARATIDE
     Indication: OSTEOPOROSIS
     Dosage: UNK, UNKNOWN
     Dates: start: 20100329, end: 20100423

REACTIONS (4)
  - Asthenia [Unknown]
  - Blood parathyroid hormone decreased [Unknown]
  - Blood calcium increased [Unknown]
  - Fatigue [Unknown]

NARRATIVE: CASE EVENT DATE: 2010
